FAERS Safety Report 12376753 (Version 2)
Quarter: 2016Q2

REPORT INFORMATION
  Report Type: Report from Study
  Country: US (occurrence: US)
  Receive Date: 20160517
  Receipt Date: 20160517
  Transmission Date: 20160815
  Serious: No
  Sender: FDA-Public Use
  Company Number: US-MALLINCKRODT-T201502898

PATIENT
  Sex: Female

DRUGS (2)
  1. REPOSITORY CORTICOTROPIN INJECTION [Suspect]
     Active Substance: CORTICOTROPIN
     Indication: GLOMERULONEPHRITIS MEMBRANOUS
     Dosage: 40 UNITS TWICE WKLY
     Route: 058
     Dates: start: 20140909
  2. REPOSITORY CORTICOTROPIN INJECTION [Suspect]
     Active Substance: CORTICOTROPIN
     Dosage: 80 UNITS TWICE WKLY
     Route: 058
     Dates: start: 20150503

REACTIONS (7)
  - Dry mouth [Unknown]
  - Muscle spasms [Unknown]
  - Blood glucose increased [Unknown]
  - Dysgeusia [Unknown]
  - Tremor [Unknown]
  - Lacrimation increased [Unknown]
  - Paraesthesia [Unknown]
